FAERS Safety Report 21293645 (Version 3)
Quarter: 2022Q4

REPORT INFORMATION
  Report Type: Spontaneous
  Country: JP (occurrence: JP)
  Receive Date: 20220905
  Receipt Date: 20221125
  Transmission Date: 20230113
  Serious: Yes (Other)
  Sender: FDA-Public Use
  Company Number: JP-JNJFOC-20220903599

PATIENT
  Age: 68 Year
  Sex: Male
  Weight: 42.7 kg

DRUGS (15)
  1. PALIPERIDONE PALMITATE [Suspect]
     Active Substance: PALIPERIDONE PALMITATE
     Indication: Schizophrenia
     Route: 030
     Dates: start: 20220207, end: 20220207
  2. PALIPERIDONE PALMITATE [Suspect]
     Active Substance: PALIPERIDONE PALMITATE
     Indication: Schizophrenia
     Route: 030
     Dates: start: 20220214, end: 20220214
  3. PALIPERIDONE PALMITATE [Suspect]
     Active Substance: PALIPERIDONE PALMITATE
     Indication: Schizophrenia
     Route: 030
     Dates: start: 20220314, end: 20220314
  4. PALIPERIDONE PALMITATE [Suspect]
     Active Substance: PALIPERIDONE PALMITATE
     Indication: Schizophrenia
     Route: 030
     Dates: start: 20220411, end: 20220411
  5. PALIPERIDONE PALMITATE [Suspect]
     Active Substance: PALIPERIDONE PALMITATE
     Indication: Schizophrenia
     Route: 030
     Dates: start: 20220509, end: 20220509
  6. PALIPERIDONE PALMITATE [Suspect]
     Active Substance: PALIPERIDONE PALMITATE
     Indication: Schizophrenia
     Route: 030
     Dates: start: 20220606, end: 20220606
  7. PALIPERIDONE PALMITATE [Suspect]
     Active Substance: PALIPERIDONE PALMITATE
     Indication: Schizophrenia
     Route: 030
     Dates: start: 20220704, end: 20220704
  8. PALIPERIDONE PALMITATE [Suspect]
     Active Substance: PALIPERIDONE PALMITATE
     Indication: Schizophrenia
     Route: 030
     Dates: start: 20220801
  9. VALBENAZINE TOSYLATE [Suspect]
     Active Substance: VALBENAZINE TOSYLATE
     Indication: Tardive dyskinesia
     Dosage: AFTER BREAKFAST
     Route: 048
     Dates: start: 20220622, end: 20220713
  10. JANUVIA [Concomitant]
     Active Substance: SITAGLIPTIN PHOSPHATE
     Indication: Diabetes mellitus
     Dosage: AFTER BREAKFAST
     Route: 048
     Dates: start: 20220608, end: 20220712
  11. LEMBOREXANT [Concomitant]
     Active Substance: LEMBOREXANT
     Route: 048
     Dates: end: 20220216
  12. SUVOREXANT [Concomitant]
     Active Substance: SUVOREXANT
     Route: 048
     Dates: end: 20220216
  13. METFORMIN HYDROCHLORIDE [Concomitant]
     Active Substance: METFORMIN HYDROCHLORIDE
     Route: 048
     Dates: end: 20220216
  14. SITAGLIPTIN PHOSPHATE [Concomitant]
     Active Substance: SITAGLIPTIN PHOSPHATE
     Route: 048
     Dates: end: 20220216
  15. TRULICITY [Concomitant]
     Active Substance: DULAGLUTIDE
     Route: 058
     Dates: start: 20220216, end: 20220601

REACTIONS (9)
  - Tardive dyskinesia [Unknown]
  - Fall [Recovered/Resolved]
  - Haemorrhage subcutaneous [Recovered/Resolved]
  - Blood potassium decreased [Unknown]
  - Abnormal behaviour [Recovered/Resolved]
  - Anal incontinence [Recovered/Resolved]
  - Skin abrasion [Recovered/Resolved]
  - Inappropriate schedule of product administration [Unknown]
  - Off label use [Unknown]

NARRATIVE: CASE EVENT DATE: 20220207
